FAERS Safety Report 6142022-9 (Version None)
Quarter: 2009Q2

REPORT INFORMATION
  Report Type: 
  Country: None (occurrence: None)
  Receive Date: 20090402
  Receipt Date: 20051214
  Transmission Date: 20091009
  Serious: Yes (Hospitalization)
  Sender: FDA-Public Use
  Company Number: US-PFIZER INC-2001059366US

PATIENT
  Sex: Male

DRUGS (11)
  1. CELECOXIB [Suspect]
     Indication: ILL-DEFINED DISORDER
     Dosage: 200 MG, 2X/DAY
     Route: 048
     Dates: start: 20000927, end: 20031008
  2. PRAVACHOL [Concomitant]
     Indication: HYPERLIPIDAEMIA
     Route: 065
     Dates: start: 19930101
  3. VITAMINS [Concomitant]
     Route: 065
  4. ASPIRIN [Concomitant]
     Route: 065
     Dates: start: 19950101
  5. ZOCOR [Concomitant]
     Route: 065
  6. THERAGRAN-M [Concomitant]
     Route: 065
  7. VITAMIN E [Concomitant]
     Route: 065
  8. FOLIC ACID [Concomitant]
     Route: 065
  9. CALCIUM [Concomitant]
     Route: 065
  10. DOCUSATE [Concomitant]
     Route: 065
     Dates: start: 20000729
  11. DRUG, UNSPECIFIED [Concomitant]
     Route: 065

REACTIONS (2)
  - CELLULITIS [None]
  - OSTEOMYELITIS [None]
